FAERS Safety Report 26169308 (Version 1)
Quarter: 2025Q4

REPORT INFORMATION
  Report Type: Spontaneous
  Country: US (occurrence: None)
  Receive Date: 20251217
  Receipt Date: 20251217
  Transmission Date: 20260117
  Serious: Yes (Hospitalization)
  Sender: FDA-CTU
  Company Number: None

PATIENT
  Age: 70 Year
  Sex: Male
  Weight: 91 kg

DRUGS (1)
  1. SEMAGLUTIDE [Suspect]
     Active Substance: SEMAGLUTIDE
     Indication: Diabetes mellitus
     Dosage: 0.5 MG QWEEK SQ
     Route: 058
     Dates: start: 20241010, end: 20250408

REACTIONS (4)
  - Enterocolitis [None]
  - Diabetes mellitus [None]
  - Nausea [None]
  - Food poisoning [None]

NARRATIVE: CASE EVENT DATE: 20250708
